FAERS Safety Report 14790107 (Version 3)
Quarter: 2018Q2

REPORT INFORMATION
  Report Type: Report from Study
  Country: FR (occurrence: FR)
  Receive Date: 20180423
  Receipt Date: 20180508
  Transmission Date: 20180711
  Serious: Yes (Other)
  Sender: FDA-Public Use
  Company Number: FR-AUROBINDO-AUR-APL-2018-021809

PATIENT
  Age: 54 Year
  Sex: Male

DRUGS (2)
  1. CELECOXIB. [Suspect]
     Active Substance: CELECOXIB
     Indication: ASPIRIN-EXACERBATED RESPIRATORY DISEASE
     Dosage: 100 MILLIGRAM
     Route: 048
  2. CELECOXIB. [Suspect]
     Active Substance: CELECOXIB
     Indication: ASPIRIN-EXACERBATED RESPIRATORY DISEASE
     Dosage: 200 MILLIGRAM
     Route: 048

REACTIONS (6)
  - Paraesthesia oral [Recovering/Resolving]
  - Asthma [Recovering/Resolving]
  - Rhinitis [Recovering/Resolving]
  - Rhinorrhoea [Recovering/Resolving]
  - Nasal obstruction [Recovering/Resolving]
  - Tongue oedema [Recovering/Resolving]
